FAERS Safety Report 18509027 (Version 3)
Quarter: 2020Q4

REPORT INFORMATION
  Report Type: Spontaneous
  Country: US (occurrence: US)
  Receive Date: 20201117
  Receipt Date: 20201214
  Transmission Date: 20210114
  Serious: Yes (Other)
  Sender: FDA-Public Use
  Company Number: US-AUROBINDO-AUR-APL-2020-055926

PATIENT
  Age: 44 Year
  Sex: Female
  Weight: 94.8 kg

DRUGS (1)
  1. SERTRALINE HYDROCHLORIDE TABLETS 100MG [Suspect]
     Active Substance: SERTRALINE HYDROCHLORIDE
     Indication: OBSESSIVE-COMPULSIVE DISORDER
     Dosage: 300 MILLIGRAM, ONCE A DAY
     Route: 048
     Dates: start: 2019

REACTIONS (5)
  - Weight increased [Recovering/Resolving]
  - Increased appetite [Unknown]
  - Hypermetabolism [Unknown]
  - Intrusive thoughts [Unknown]
  - Fatigue [Unknown]

NARRATIVE: CASE EVENT DATE: 2019
